FAERS Safety Report 8791984 (Version 1)
Quarter: 2012Q4

REPORT INFORMATION
  Report Type: 
  Country: DE (occurrence: GB)
  Receive Date: 20120918
  Receipt Date: 20120918
  Transmission Date: 20130627
  Serious: Yes (Other)
  Sender: FDA-Public Use
  Company Number: GB-BRISTOL-MYERS SQUIBB COMPANY-16941544

PATIENT
  Age: 15 Year
  Sex: Female

DRUGS (4)
  1. ARIPIPRAZOLE [Suspect]
  2. CETIRIZINE HCL AND PSEUDOEPHEDRINE HCL ER [Interacting]
     Indication: SEASONAL ALLERGY
  3. LAMICTAL [Interacting]
     Indication: BIPOLAR DISORDER
     Route: 048
  4. ETONOGESTREL [Interacting]
     Indication: CONTRACEPTION
     Route: 059

REACTIONS (5)
  - Abortion spontaneous [Unknown]
  - Pregnancy [Unknown]
  - Drug interaction [Unknown]
  - Metrorrhagia [Unknown]
  - Pregnancy with contraceptive device [None]
